FAERS Safety Report 12722648 (Version 1)
Quarter: 2016Q3

REPORT INFORMATION
  Report Type: Report from Study
  Country: US (occurrence: US)
  Receive Date: 20160907
  Receipt Date: 20160907
  Transmission Date: 20161109
  Serious: Yes (Other)
  Sender: FDA-Public Use
  Company Number: US-ROCHE-1568231

PATIENT
  Age: 11 Year
  Sex: Male
  Weight: 24.5 kg

DRUGS (3)
  1. IRINOTECAN [Suspect]
     Active Substance: IRINOTECAN
     Indication: MEDULLOBLASTOMA
     Dosage: 50 MG/M2/DOSE IV OVER 90 MINUTES ON DAYS 1-5?DATE OF LAST DOSE PRIOR TO EVENT- 13/MAR/2015?TOTAL COU
     Route: 042
  2. TEMOZOLOMIDE. [Suspect]
     Active Substance: TEMOZOLOMIDE
     Indication: MEDULLOBLASTOMA
     Dosage: ON DAYS 1-5?DATE OF LAST DOSE PRIOR TO EVENT- 13/MAR/2015?TOTAL COURSE ADMINISTERED THIS COURSE- 700
     Route: 048
  3. BEVACIZUMAB [Suspect]
     Active Substance: BEVACIZUMAB
     Indication: MEDULLOBLASTOMA
     Dosage: DATE OF LAST DOSE PRIOR FIRST OCCURRENCE OF EVENT- 09/FEB/2015 DOSE AMOUNT 990MG?DATE OF LAST DOSE P
     Route: 042
     Dates: start: 20141215

REACTIONS (2)
  - Suicidal ideation [Unknown]
  - Suicidal ideation [Unknown]

NARRATIVE: CASE EVENT DATE: 20150330
